FAERS Safety Report 5995741-9 (Version None)
Quarter: 2008Q4

REPORT INFORMATION
  Report Type: 
  Country: None (occurrence: None)
  Receive Date: 20081212
  Receipt Date: 20081202
  Transmission Date: 20090506
  Serious: Yes (Hospitalization, Other)
  Sender: FDA-Public Use
  Company Number: DE-PFIZER INC-2008071136

PATIENT

DRUGS (23)
  1. INSPRA [Suspect]
     Indication: CARDIAC FAILURE
     Dosage: 25 MG, 1X/DAY
     Route: 048
     Dates: start: 20070201, end: 20080301
  2. INSPRA [Suspect]
     Dosage: 25 MG, 2X/DAY
     Route: 048
     Dates: start: 20080301, end: 20080101
  3. CLONIDINE [Concomitant]
     Dosage: 250 UNK, 1X/DAY
  4. ENALAPRIL [Concomitant]
     Dosage: 5 MG, 2X/DAY
  5. CARVEDILOL [Concomitant]
     Dosage: 12.5 MG, 2X/DAY
  6. LASIX [Concomitant]
     Dosage: 250 MG, 1X/DAY
  7. OMEPRAZOLE [Concomitant]
     Dosage: 20 MG, 2X/DAY
  8. SIMVASTATIN [Concomitant]
     Dosage: 10 UNK, 1X/DAY
  9. ASPIRIN [Concomitant]
     Dosage: 100 UNK, 1X/DAY
  10. ISOMONIT [Concomitant]
     Dosage: 10 UNK, 2X/DAY
  11. DIGITOXIN [Concomitant]
     Dosage: 0.07 UNK, 1X/DAY
  12. VIGANTOL ^MERCK^ [Concomitant]
     Dosage: 45 GTT, ONCE WEEKLY
     Route: 048
  13. NEPRESOL [Concomitant]
     Dosage: UNK
  14. NIFEDIPINE [Concomitant]
     Dosage: 20 UNK, AS NEEDED
  15. CINACALCET [Concomitant]
     Dosage: 30 MG, 1X/DAY
  16. ATACAND [Concomitant]
     Dosage: 8 MG, 2X/DAY
  17. PREDNISOLONE [Concomitant]
     Dosage: 5 UNK, 1X/DAY
  18. ARANESP [Concomitant]
     Dosage: 10 UNK, WEEKLY
     Route: 058
  19. COLDASTOP [Concomitant]
  20. ATROVENT [Concomitant]
     Route: 045
  21. SYMBICORT [Concomitant]
     Dosage: 1 UNK, 2X/DAY
     Route: 055
  22. SPIRIVA [Concomitant]
     Dosage: 1 UNK, 1X/DAY
     Route: 055
  23. TM [Concomitant]
     Dosage: 1.5 L, 1X/DAY

REACTIONS (3)
  - COLON ADENOMA [None]
  - NAUSEA [None]
  - VOMITING [None]
